FAERS Safety Report 14528996 (Version 3)
Quarter: 2018Q1

REPORT INFORMATION
  Report Type: Spontaneous
  Country: US (occurrence: US)
  Receive Date: 20180214
  Receipt Date: 20180227
  Transmission Date: 20180509
  Serious: No
  Sender: FDA-Public Use
  Company Number: US-PFIZER INC-2017495646

PATIENT
  Age: 65 Year
  Sex: Female
  Weight: 61 kg

DRUGS (1)
  1. IBRANCE [Suspect]
     Active Substance: PALBOCICLIB
     Indication: BREAST CANCER FEMALE
     Dosage: 125 MG, CYCLIC (ONCE A DAY BY MOUTH FOR 21 DAYS THEN OFF FOR 7 DAYS)
     Route: 048
     Dates: start: 201611, end: 201801

REACTIONS (4)
  - Feeling abnormal [Unknown]
  - Diarrhoea [Recovering/Resolving]
  - Anxiety [Unknown]
  - Abdominal pain upper [Recovering/Resolving]

NARRATIVE: CASE EVENT DATE: 2018
